FAERS Safety Report 10258704 (Version 2)
Quarter: 2014Q2

REPORT INFORMATION
  Report Type: Spontaneous
  Country: US (occurrence: US)
  Receive Date: 20140625
  Receipt Date: 20140625
  Transmission Date: 20141212
  Serious: No
  Sender: FDA-Public Use
  Company Number: US-ASTELLAS-2008US000997

PATIENT
  Sex: Female
  Weight: 61 kg

DRUGS (7)
  1. VESICARE [Suspect]
     Indication: URINARY INCONTINENCE
     Route: 048
     Dates: start: 200708, end: 200711
  2. VESICARE [Suspect]
     Route: 048
     Dates: start: 200711, end: 20080413
  3. VESICARE [Suspect]
     Route: 048
     Dates: start: 20080414
  4. NEXIUM [Concomitant]
     Indication: PRODUCT USED FOR UNKNOWN INDICATION
     Route: 065
  5. DILANTIN [Concomitant]
     Indication: PRODUCT USED FOR UNKNOWN INDICATION
  6. LISINOPRIL [Concomitant]
     Indication: PRODUCT USED FOR UNKNOWN INDICATION
  7. CLONAZEPAM [Concomitant]
     Indication: PRODUCT USED FOR UNKNOWN INDICATION

REACTIONS (3)
  - Drug ineffective [Recovered/Resolved]
  - Nocturia [Recovering/Resolving]
  - Dry mouth [Not Recovered/Not Resolved]
